FAERS Safety Report 25721682 (Version 1)
Quarter: 2025Q3

REPORT INFORMATION
  Report Type: Spontaneous
  Country: US (occurrence: US)
  Receive Date: 20250825
  Receipt Date: 20250825
  Transmission Date: 20251020
  Serious: No
  Sender: CHATTEM
  Company Number: US-OPELLA-2024OHG040567

PATIENT

DRUGS (1)
  1. NASACORT ALLERGY 24HR [Suspect]
     Active Substance: TRIAMCINOLONE ACETONIDE
     Indication: Product used for unknown indication
     Route: 065

REACTIONS (3)
  - Drug effect less than expected [Unknown]
  - Product odour abnormal [Unknown]
  - No adverse event [Unknown]
